FAERS Safety Report 17548432 (Version 2)
Quarter: 2020Q2

REPORT INFORMATION
  Report Type: Spontaneous
  Country: FR (occurrence: FR)
  Receive Date: 20200317
  Receipt Date: 20200406
  Transmission Date: 20200713
  Serious: Yes (Hospitalization, Other)
  Sender: FDA-Public Use
  Company Number: NVSC2020FR070909

PATIENT
  Age: 44 Year
  Sex: Male

DRUGS (2)
  1. TEGRETOL [Suspect]
     Active Substance: CARBAMAZEPINE
     Indication: TRIGEMINAL NEURALGIA
     Dosage: UNK
     Route: 065
     Dates: start: 2013, end: 201311
  2. LAMALINE (ACETAMINOPHEN\CAFFEINE\OPIUM) [Suspect]
     Active Substance: ACETAMINOPHEN\CAFFEINE\OPIUM
     Indication: TRIGEMINAL NEURALGIA
     Dosage: UNK
     Route: 065
     Dates: start: 2013

REACTIONS (32)
  - Mononucleosis syndrome [Unknown]
  - Drug hypersensitivity [Unknown]
  - Diarrhoea [Unknown]
  - Speech disorder [Unknown]
  - Paralysis [Unknown]
  - Pyrexia [Unknown]
  - Headache [Recovered/Resolved]
  - Gait disturbance [Unknown]
  - Fall [Unknown]
  - Behaviour disorder [Recovered/Resolved]
  - Drug reaction with eosinophilia and systemic symptoms [Unknown]
  - Visual impairment [Unknown]
  - Fatigue [Unknown]
  - Myalgia [Unknown]
  - Cerebral haematoma [Recovered/Resolved with Sequelae]
  - Suicide attempt [Unknown]
  - Loss of consciousness [Unknown]
  - Rash [Unknown]
  - Haematoma [Unknown]
  - Myocarditis [Unknown]
  - Hepatitis [Unknown]
  - Limb discomfort [Unknown]
  - Vomiting [Unknown]
  - Tremor [Recovered/Resolved]
  - Cerebrovascular accident [Recovered/Resolved with Sequelae]
  - Blindness [Unknown]
  - Quadriparesis [Unknown]
  - Attention deficit hyperactivity disorder [Unknown]
  - Memory impairment [Unknown]
  - Skin lesion [Unknown]
  - Confusional state [Unknown]
  - Migraine [Unknown]

NARRATIVE: CASE EVENT DATE: 20131120
